FAERS Safety Report 9571050 (Version 1)
Quarter: 2013Q4

REPORT INFORMATION
  Report Type: Spontaneous
  Country: CH (occurrence: CH)
  Receive Date: 20131001
  Receipt Date: 20131001
  Transmission Date: 20140711
  Serious: Yes (Life-Threatening)
  Sender: FDA-Public Use
  Company Number: CH-JNJFOC-20130917616

PATIENT
  Age: 79 Year
  Sex: Male

DRUGS (16)
  1. XARELTO [Suspect]
     Indication: PRODUCT USED FOR UNKNOWN INDICATION
     Route: 048
     Dates: start: 20130620, end: 20130812
  2. DAFALGAN [Concomitant]
     Route: 048
  3. BETNOVATE [Concomitant]
     Route: 061
  4. DIAMICRON [Concomitant]
     Route: 048
  5. ACTOS [Concomitant]
     Route: 048
  6. METFIN [Concomitant]
     Route: 048
  7. LIPANTHYL [Concomitant]
     Route: 048
  8. ATORVASTATIN [Concomitant]
     Route: 048
  9. EUTHYROX [Concomitant]
     Route: 048
  10. BILOL [Concomitant]
     Route: 048
  11. TORASEMID [Concomitant]
     Route: 048
  12. XENALON [Concomitant]
     Route: 048
  13. PRADIF [Concomitant]
     Route: 048
  14. NEXIUM [Concomitant]
     Route: 048
  15. SEREVENT (SALMETEROL XINAFOATE) [Concomitant]
     Route: 002
  16. DAIVONEX [Concomitant]
     Route: 061

REACTIONS (2)
  - Gastric perforation [Not Recovered/Not Resolved]
  - Gastric haemorrhage [Not Recovered/Not Resolved]
